FAERS Safety Report 9671210 (Version 1)
Quarter: 2013Q4

REPORT INFORMATION
  Report Type: Spontaneous
  Country: US (occurrence: US)
  Receive Date: 20131106
  Receipt Date: 20131106
  Transmission Date: 20140711
  Serious: Yes (Hospitalization)
  Sender: FDA-Public Use
  Company Number: US-NOVOPROD-391275

PATIENT
  Age: 50 Year
  Sex: Male
  Weight: 91.61 kg

DRUGS (9)
  1. VICTOZA [Suspect]
     Indication: TYPE 2 DIABETES MELLITUS
     Dosage: 0.6 MG, QD
     Route: 058
     Dates: start: 20130410
  2. VICTOZA [Suspect]
     Dosage: 1.2 MG, QD
  3. VICTOZA [Suspect]
     Dosage: 1.8 MG, QD
  4. VICTOZA [Suspect]
     Dosage: 0.6 MG, QD
  5. VICTOZA [Suspect]
     Dosage: 1.2 MG, QD
  6. VICTOZA [Suspect]
     Dosage: 1.8 MG, QD
     Dates: end: 201310
  7. METFORMIN [Concomitant]
     Indication: TYPE 2 DIABETES MELLITUS
     Dosage: 1000 MG BID
  8. GLIMEPIRIDE [Concomitant]
     Indication: TYPE 2 DIABETES MELLITUS
     Dosage: 4 MG, BID
  9. JANUVIA [Concomitant]
     Indication: TYPE 2 DIABETES MELLITUS
     Dosage: 100 MG, QD

REACTIONS (2)
  - Pancreatic carcinoma [Not Recovered/Not Resolved]
  - Vision blurred [Unknown]
